FAERS Safety Report 21482097 (Version 1)
Quarter: 2022Q4

REPORT INFORMATION
  Report Type: Spontaneous
  Country: US (occurrence: US)
  Receive Date: 20221020
  Receipt Date: 20221020
  Transmission Date: 20230112
  Serious: No
  Sender: FDA-Public Use
  Company Number: US-ALLERGAN-2210987US

PATIENT
  Sex: Male

DRUGS (2)
  1. LINZESS [Suspect]
     Active Substance: LINACLOTIDE
     Indication: Irritable bowel syndrome
     Dosage: 145 MCG (ONE) EVERY TWO DAYS
     Route: 048
  2. LINZESS [Suspect]
     Active Substance: LINACLOTIDE
     Dosage: 145 ?G, QD, ACTUAL: 1 CAPSULE 145 MCG ONCE A DAY HALF AN HOUR BEFORE SUPPER
     Route: 048
     Dates: start: 20220329

REACTIONS (7)
  - Nightmare [Unknown]
  - Asthenia [Unknown]
  - Inappropriate schedule of product administration [Unknown]
  - Bowel movement irregularity [Not Recovered/Not Resolved]
  - Dyspepsia [Unknown]
  - Therapeutic response decreased [Unknown]
  - Abdominal pain upper [Recovered/Resolved]

NARRATIVE: CASE EVENT DATE: 20220329
